FAERS Safety Report 4340399-8 (Version None)
Quarter: 2004Q2

REPORT INFORMATION
  Report Type: 
  Country: None (occurrence: None)
  Receive Date: 20040414
  Receipt Date: 20040405
  Transmission Date: 20050107
  Serious: Yes (Disabling)
  Sender: FDA-Public Use
  Company Number: 03P-167-0236447-00

PATIENT
  Age: 63 Year
  Sex: Female
  Weight: 60 kg

DRUGS (3)
  1. HUMIRA [Suspect]
     Dosage: 40 MG, SUBCUTANEOUS
     Route: 058
     Dates: end: 20030101
  2. PREDNISOLONE [Concomitant]
  3. DIHYDROCODEINE [Concomitant]

REACTIONS (2)
  - DERMATITIS PSORIASIFORM [None]
  - PHOTOSENSITIVITY REACTION [None]
